FAERS Safety Report 11130156 (Version 1)
Quarter: 2015Q2

REPORT INFORMATION
  Report Type: Spontaneous
  Country: TW (occurrence: TW)
  Receive Date: 20150521
  Receipt Date: 20150521
  Transmission Date: 20150821
  Serious: Yes (Hospitalization, Other)
  Sender: FDA-Public Use
  Company Number: TW-BAUSCH-BL-2015-013840

PATIENT
  Age: 30 Year
  Sex: Female

DRUGS (2)
  1. ASTEMIZOLE [Suspect]
     Active Substance: ASTEMIZOLE
     Indication: PRODUCT USED FOR UNKNOWN INDICATION
     Route: 065
  2. ERYTHROMYCIN. [Suspect]
     Active Substance: ERYTHROMYCIN
     Indication: PRODUCT USED FOR UNKNOWN INDICATION
     Route: 065

REACTIONS (2)
  - Torsade de pointes [Recovered/Resolved]
  - Syncope [Unknown]
